FAERS Safety Report 14572459 (Version 1)
Quarter: 2018Q1

REPORT INFORMATION
  Report Type: Spontaneous
  Country: JP (occurrence: JP)
  Receive Date: 20180226
  Receipt Date: 20180226
  Transmission Date: 20180509
  Serious: Yes (Other)
  Sender: FDA-Public Use
  Company Number: JP-BAYER-2018-033467

PATIENT
  Age: 59 Year
  Sex: Female
  Weight: 57 kg

DRUGS (1)
  1. GADOVIST [Suspect]
     Active Substance: GADOBUTROL
     Indication: NUCLEAR MAGNETIC RESONANCE IMAGING
     Dosage: 5.7 ML, ONCE
     Route: 042
     Dates: start: 20180215, end: 20180215

REACTIONS (4)
  - Oropharyngeal discomfort [Recovering/Resolving]
  - Urticaria [None]
  - Cough [None]
  - Nausea [None]

NARRATIVE: CASE EVENT DATE: 20180215
